FAERS Safety Report 21958693 (Version 2)
Quarter: 2023Q1

REPORT INFORMATION
  Report Type: Spontaneous
  Country: JP (occurrence: JP)
  Receive Date: 20230206
  Receipt Date: 20230212
  Transmission Date: 20230418
  Serious: Yes (Death, Other)
  Sender: FDA-Public Use
  Company Number: JP-JNJFOC-20230208881

PATIENT
  Age: 73 Year
  Sex: Female

DRUGS (1)
  1. TRABECTEDIN [Suspect]
     Active Substance: TRABECTEDIN
     Indication: Liposarcoma
     Route: 041

REACTIONS (4)
  - Liposarcoma [Fatal]
  - Renal impairment [Unknown]
  - Cerebral infarction [Unknown]
  - Thrombophlebitis migrans [Unknown]

NARRATIVE: CASE EVENT DATE: 20230101
